FAERS Safety Report 25954176 (Version 2)
Quarter: 2025Q4

REPORT INFORMATION
  Report Type: Report from Study
  Country: EU (occurrence: EU)
  Receive Date: 20251023
  Receipt Date: 20251030
  Transmission Date: 20260118
  Serious: No
  Sender: ABBVIE
  Company Number: EU-ABBVIE-6515243

PATIENT
  Age: 82 Year
  Sex: Male

DRUGS (1)
  1. FOSCARBIDOPA\FOSLEVODOPA [Suspect]
     Active Substance: FOSCARBIDOPA\FOSLEVODOPA
     Indication: Product used for unknown indication
     Dosage: LAST ADMIN DATE: OCT 2025
     Route: 058
     Dates: start: 20251016, end: 20251023

REACTIONS (1)
  - Condition aggravated [Not Recovered/Not Resolved]

NARRATIVE: CASE EVENT DATE: 20250101
